FAERS Safety Report 5154549-7 (Version None)
Quarter: 2006Q4

REPORT INFORMATION
  Report Type: 
  Country: None (occurrence: None)
  Receive Date: 20061113
  Receipt Date: 20061026
  Transmission Date: 20070319
  Serious: Yes (Death)
  Sender: FDA-Public Use
  Company Number: S06-UKI-04635-01

PATIENT
  Age: 17 Year
  Weight: 80 kg

DRUGS (10)
  1. CITALOPRAM HYDROBROMIDE [Suspect]
     Indication: DEPRESSION
  2. CITALOPRAM HYDROBROMIDE [Suspect]
     Indication: DEPRESSION
     Dosage: 40 MG UNK PO
     Route: 048
     Dates: start: 20051201
  3. CARBAMAZEPINE [Suspect]
  4. ATENOLOL [Suspect]
  5. AMLODIPINE [Suspect]
  6. PAROXETINE HCL [Suspect]
  7. ASPIRIN [Concomitant]
  8. BENDROFLUAZIDE [Suspect]
  9. ATORVASTATIN CALCIUM [Suspect]
  10. DIAZEPAM [Concomitant]

REACTIONS (4)
  - COMPLETED SUICIDE [None]
  - MULTIPLE DRUG OVERDOSE [None]
  - SELF-INJURIOUS IDEATION [None]
  - SELF-MEDICATION [None]
